FAERS Safety Report 24555807 (Version 1)
Quarter: 2024Q4

REPORT INFORMATION
  Report Type: Spontaneous
  Country: US (occurrence: US)
  Receive Date: 20241028
  Receipt Date: 20241028
  Transmission Date: 20250115
  Serious: Yes (Other)
  Sender: PFIZER
  Company Number: US-PFIZER INC-PV202400136900

PATIENT
  Age: 56 Year
  Sex: Female
  Weight: 76 kg

DRUGS (2)
  1. LEVOTHYROXINE SODIUM [Suspect]
     Active Substance: LEVOTHYROXINE SODIUM
     Indication: Hypothyroidism
     Dosage: 150 UG, DAILY
     Dates: start: 2009
  2. LEVOTHYROXINE SODIUM [Suspect]
     Active Substance: LEVOTHYROXINE SODIUM
     Dosage: 300 UG, DAILY

REACTIONS (6)
  - Major depression [Unknown]
  - Fatigue [Unknown]
  - Temperature intolerance [Unknown]
  - Constipation [Unknown]
  - Dry skin [Unknown]
  - Cognitive disorder [Unknown]
